FAERS Safety Report 5720641-9 (Version None)
Quarter: 2008Q2

REPORT INFORMATION
  Report Type: 
  Country: None (occurrence: None)
  Receive Date: 20080429
  Receipt Date: 20080416
  Transmission Date: 20081010
  Serious: Yes (Other)
  Sender: FDA-Public Use
  Company Number: BR-JNJFOC-20080405070

PATIENT
  Age: 9 Year
  Sex: Female

DRUGS (1)
  1. LEVAMISOLE [Suspect]
     Indication: DRUG USE FOR UNKNOWN INDICATION
     Route: 065

REACTIONS (2)
  - LEUKOENCEPHALOPATHY [None]
  - RASH [None]
